FAERS Safety Report 6035150-X (Version None)
Quarter: 2009Q1

REPORT INFORMATION
  Report Type: 
  Country: None (occurrence: None)
  Receive Date: 20090112
  Receipt Date: 20090107
  Transmission Date: 20090719
  Serious: Yes (Hospitalization)
  Sender: FDA-Public Use
  Company Number: US-B.I. PHARMACEUTICALS,INC./RIDGEFIELD-2009-DE-00109GD

PATIENT
  Age: 62 Year
  Sex: Female

DRUGS (4)
  1. BISACODYL [Suspect]
     Indication: CONSTIPATION
  2. MAGNESIUM CITRATE [Suspect]
     Indication: CONSTIPATION
  3. SENNA [Suspect]
     Indication: CONSTIPATION
  4. ZELNORM [Suspect]
     Indication: CONSTIPATION

REACTIONS (3)
  - ABDOMINAL PAIN [None]
  - DRUG INEFFECTIVE [None]
  - FAECALOMA [None]
